FAERS Safety Report 5237412-2 (Version None)
Quarter: 2007Q1

REPORT INFORMATION
  Report Type: 
  Country: None (occurrence: None)
  Receive Date: 20070213
  Receipt Date: 20070202
  Transmission Date: 20070707
  Serious: Yes (Hospitalization)
  Sender: FDA-Public Use
  Company Number: ID-BOEHRINGER INGELHEIM GMBH, GERMANY-2007-DE-00673GD

PATIENT
  Age: 31 Year
  Sex: Male

DRUGS (2)
  1. IBUPROFEN [Suspect]
     Indication: PAIN
     Dosage: INTERMITTANTLY 400 MG, 10 TABLETS WITHIN THE 2 WEEKS PRIOR TO TRAVEL
     Route: 048
  2. DICLOFENAC SODIUM [Suspect]
     Indication: PAIN

REACTIONS (12)
  - ABDOMINAL DISTENSION [None]
  - FACE OEDEMA [None]
  - FLANK PAIN [None]
  - HAEMATURIA [None]
  - HYPERTENSION [None]
  - NAUSEA [None]
  - NEPHRITIS INTERSTITIAL [None]
  - OEDEMA PERIPHERAL [None]
  - PROTEINURIA [None]
  - PYURIA [None]
  - RENAL FAILURE ACUTE [None]
  - VOMITING [None]
